FAERS Safety Report 12171970 (Version 1)
Quarter: 2016Q1

REPORT INFORMATION
  Report Type: Spontaneous
  Country: US (occurrence: None)
  Receive Date: 20160310
  Receipt Date: 20160310
  Transmission Date: 20160526
  Serious: Yes (Hospitalization)
  Sender: FDA-Public Use
  Company Number: None

PATIENT
  Age: 66 Year
  Sex: Female

DRUGS (1)
  1. HARVONI [Suspect]
     Active Substance: LEDIPASVIR\SOFOSBUVIR
     Indication: HEPATITIS C
     Dosage: 1 DAILY BY MOUTH
     Route: 048
     Dates: start: 20151202

REACTIONS (2)
  - Urinary tract infection [None]
  - Clostridium difficile infection [None]

NARRATIVE: CASE EVENT DATE: 20160216
